FAERS Safety Report 15402873 (Version 4)
Quarter: 2018Q4

REPORT INFORMATION
  Report Type: Report from Study
  Country: US (occurrence: US)
  Receive Date: 20180919
  Receipt Date: 20181231
  Transmission Date: 20190204
  Serious: Yes (Hospitalization, Other)
  Sender: FDA-Public Use
  Company Number: US-MALLINCKRODT-T201803368

PATIENT
  Age: 50 Year
  Sex: Female

DRUGS (2)
  1. REPOSITORY CORTICOTROPIN INJECTION [Suspect]
     Active Substance: CORTICOTROPIN
     Indication: SARCOIDOSIS
     Dosage: 40 UNITS/0.5 ML, EVERY 3 DAYS/EVERY 72 HOURS
     Route: 058
     Dates: start: 20180719, end: 2018
  2. REPOSITORY CORTICOTROPIN INJECTION [Suspect]
     Active Substance: CORTICOTROPIN
     Dosage: 40 UNITS/0.5 ML, EVERY 3 DAYS/EVERY 72 HOURS
     Route: 058
     Dates: start: 2018

REACTIONS (15)
  - Anaphylactic shock [Unknown]
  - Feeling abnormal [Unknown]
  - Malaise [Unknown]
  - Abscess limb [Not Recovered/Not Resolved]
  - Tinnitus [Unknown]
  - Flushing [Not Recovered/Not Resolved]
  - Fatigue [Unknown]
  - Pallor [Not Recovered/Not Resolved]
  - Sunburn [Not Recovered/Not Resolved]
  - Dark circles under eyes [Not Recovered/Not Resolved]
  - Insomnia [Unknown]
  - Respiratory tract infection [Unknown]
  - Mobility decreased [Unknown]
  - Staphylococcal abscess [Unknown]
  - Muscle injury [Unknown]

NARRATIVE: CASE EVENT DATE: 2018
